FAERS Safety Report 8862205 (Version 1)
Quarter: 2012Q4

REPORT INFORMATION
  Report Type: 
  Country: FR (occurrence: FR)
  Receive Date: 20121026
  Receipt Date: 20121026
  Transmission Date: 20130627
  Serious: Yes (Death, Hospitalization)
  Sender: FDA-Public Use
  Company Number: FR-MERCK-1210FRA011585

PATIENT
  Age: 70 Year
  Sex: Female

DRUGS (10)
  1. TIENAM 500MG/500MG, POUDRE POUR PERFUSION [Suspect]
     Indication: FEBRILE INFECTION
     Dosage: UNK
     Route: 042
     Dates: start: 20120520, end: 20120529
  2. TIENAM 500MG/500MG, POUDRE POUR PERFUSION [Suspect]
     Dosage: UNK
     Route: 042
     Dates: start: 20120709, end: 20120719
  3. CIPROFLOXACIN HYDROCHLORIDE [Suspect]
     Indication: FEBRILE INFECTION
     Dosage: UNK
     Dates: start: 20120520, end: 20120529
  4. CIPROFLOXACIN HYDROCHLORIDE [Suspect]
     Dosage: UNK
     Dates: start: 20120809
  5. OFLOCET [Suspect]
     Indication: FEBRILE INFECTION
     Dosage: UNK
     Dates: start: 20120530, end: 20120605
  6. VANCOMYCIN [Suspect]
     Indication: FEBRILE INFECTION
     Dosage: UNK
     Dates: start: 20120503, end: 20120524
  7. VANCOMYCIN [Suspect]
     Dosage: UNK
     Dates: start: 20120615
  8. ROCEPHIN [Suspect]
     Indication: FEBRILE INFECTION
     Dosage: UNK
     Dates: start: 20120530
  9. GENTAMICIN [Suspect]
     Indication: SEPSIS
     Dosage: UNK
     Dates: start: 20120615
  10. GENTAMICIN [Suspect]
     Dosage: UNK
     Dates: start: 20120709, end: 20120719

REACTIONS (16)
  - Drug reaction with eosinophilia and systemic symptoms [Fatal]
  - Fall [None]
  - Fracture [None]
  - Renal failure [None]
  - Staphylococcal infection [None]
  - Ecthyma [None]
  - Herpes simplex serology positive [None]
  - Dermatophytosis [None]
  - Cardiac failure [None]
  - Depressed level of consciousness [None]
  - Hypoglycaemia [None]
  - Acute respiratory failure [None]
  - Sepsis [None]
  - Renal failure chronic [None]
  - Culture urine positive [None]
  - Blood culture positive [None]
